FAERS Safety Report 17685509 (Version 1)
Quarter: 2020Q2

REPORT INFORMATION
  Report Type: Spontaneous
  Country: HR (occurrence: HR)
  Receive Date: 20200420
  Receipt Date: 20200420
  Transmission Date: 20200714
  Serious: Yes (Death, Life-Threatening, Disabling, Other)
  Sender: FDA-Public Use
  Company Number: HR-MYLANLABS-2020M1038821

PATIENT
  Age: 40 Year
  Sex: Female

DRUGS (31)
  1. AZACITIDINE. [Suspect]
     Active Substance: AZACITIDINE
     Indication: ACUTE MYELOID LEUKAEMIA
     Dosage: THREE CYCLES
  2. DOXORUBICIN HCL [Suspect]
     Active Substance: DOXORUBICIN HYDROCHLORIDE
     Indication: DIFFUSE LARGE B-CELL LYMPHOMA STAGE IV
     Dosage: FIVE CYCLES (R-CHOEP PROTOCOL) AND THREE CYCLES (R-CHEVP PROTOCOL)
  3. ETOPOSIDE. [Suspect]
     Active Substance: ETOPOSIDE
     Dosage: (R-CHEVP PROTOCOL)
     Route: 065
  4. DOXIL [Suspect]
     Active Substance: DOXORUBICIN HYDROCHLORIDE
     Indication: PRODUCT USED FOR UNKNOWN INDICATION
     Dosage: THREE CYCLES (R-CHEVP PROTOCOL)
     Route: 042
  5. CARVELOL [Concomitant]
     Active Substance: CARVEDILOL
     Dosage: UNK
  6. ETOPOSIDE. [Suspect]
     Active Substance: ETOPOSIDE
     Indication: DIFFUSE LARGE B-CELL LYMPHOMA STAGE IV
     Dosage: FIVE CYCLES (R-CHOEP PROTOCOL) AND THREE CYCLES (R-CHEVP PROTOCOL)
  7. ENDOXAN                            /00021102/ [Suspect]
     Active Substance: CYCLOPHOSPHAMIDE
     Indication: PRODUCT USED FOR UNKNOWN INDICATION
     Dosage: (R-CHEVP PROTOCOL)
     Route: 065
  8. BELODERM                           /00008501/ [Concomitant]
     Dosage: UNK
  9. ACYCLOVIR                          /00587301/ [Suspect]
     Active Substance: ACYCLOVIR
     Indication: ANTIBIOTIC PROPHYLAXIS
     Dosage: UNK
  10. VINBLASTIN [Suspect]
     Active Substance: VINBLASTINE
     Indication: DIFFUSE LARGE B-CELL LYMPHOMA STAGE IV
     Dosage: THREE CYCLES (R-CHEVP PROTOCOL)
  11. RITUXIMAB. [Suspect]
     Active Substance: RITUXIMAB
     Indication: DIFFUSE LARGE B-CELL LYMPHOMA STAGE IV
     Dosage: (R-CHEVP PROTOCOL)
     Route: 065
  12. FLUCONAZOLE. [Suspect]
     Active Substance: FLUCONAZOLE
     Indication: ANTIBIOTIC PROPHYLAXIS
     Dosage: UNK
  13. DIFLUCAN [Concomitant]
     Active Substance: FLUCONAZOLE
     Dosage: UNK
  14. DOLOKAIN [Concomitant]
     Dosage: UNK
  15. METILDIGOXIN [Concomitant]
     Active Substance: METILDIGOXIN
     Dosage: UNK
  16. RITUXIMAB. [Suspect]
     Active Substance: RITUXIMAB
     Dosage: (R-CHEVP PROTOCOL)
     Route: 065
  17. CIPROFLOXACIN. [Suspect]
     Active Substance: CIPROFLOXACIN
     Dosage: ( R-CHOEP PROTOCOL)
  18. METHYLPREDNISOLONE. [Suspect]
     Active Substance: METHYLPREDNISOLONE
     Dosage: FIVE CYCLES (R-CHOEP PROTOCOL) AND THREE CYCLES (R-CHEVP PROTOCOL)
  19. THIOGUANINE [Suspect]
     Active Substance: THIOGUANINE
     Indication: REFRACTORY ANAEMIA WITH AN EXCESS OF BLASTS
     Dosage: UNK
  20. VINCRISTINE [Suspect]
     Active Substance: VINCRISTINE
     Indication: DIFFUSE LARGE B-CELL LYMPHOMA STAGE IV
     Dosage: FIVE CYCLES (R-CHOEP PROTOCOL)
  21. METHYLPREDNISOLONE. [Suspect]
     Active Substance: METHYLPREDNISOLONE
     Indication: DIFFUSE LARGE B-CELL LYMPHOMA STAGE IV
     Dosage: (R-CHEVP PROTOCOL)
     Route: 065
  22. BENZYDAMINE HYDROCHLORIDE [Concomitant]
     Active Substance: BENZYDAMINE HYDROCHLORIDE
  23. CIPROFLOXACIN. [Suspect]
     Active Substance: CIPROFLOXACIN
     Indication: ANTIBIOTIC PROPHYLAXIS
     Dosage: (R-CHEVP PROTOCOL)
     Route: 065
  24. GELCLAIR                           /01702001/ [Concomitant]
     Dosage: UNK
  25. CYCLOPHOSPHAMIDE. [Suspect]
     Active Substance: CYCLOPHOSPHAMIDE
     Indication: DIFFUSE LARGE B-CELL LYMPHOMA STAGE IV
     Dosage: FIVE CYCLES (R-CHOEP PROTOCOL) AND THREE CYCLES (R-CHEVP PROTOCOL)
  26. CURASEPT                           /00133002/ [Concomitant]
     Dosage: MOUTHWASH THREE TIMES A DAY
  27. FURSEMID                           /00032601/ [Concomitant]
     Active Substance: FUROSEMIDE
     Dosage: UNK
  28. TRITACE [Concomitant]
     Active Substance: RAMIPRIL
     Dosage: UNK
  29. ALDACTONE [Concomitant]
     Active Substance: SPIRONOLACTONE
     Dosage: UNK
  30. RITUXIMAB. [Suspect]
     Active Substance: RITUXIMAB
     Dosage: FIVE CYCLES (R-CHOEP PROTOCOL) AND THREE CYCLES (R-CHEVP PROTOCOL)
  31. CONTROLOC [Concomitant]
     Active Substance: PANTOPRAZOLE SODIUM
     Dosage: UNK

REACTIONS (11)
  - Leukaemia [Unknown]
  - Congestive cardiomyopathy [Unknown]
  - Pancytopenia [Unknown]
  - Thrombocytopenia [Unknown]
  - Staphylococcal sepsis [Fatal]
  - Toxic neuropathy [Unknown]
  - Refractory anaemia with an excess of blasts [Unknown]
  - Neutropenia [Unknown]
  - Aspergillus infection [Fatal]
  - Acute myeloid leukaemia [Unknown]
  - Mouth ulceration [Unknown]
